FAERS Safety Report 5826987-8 (Version None)
Quarter: 2008Q3

REPORT INFORMATION
  Report Type: 
  Country: None (occurrence: None)
  Receive Date: 20080725
  Receipt Date: 20080714
  Transmission Date: 20090109
  Serious: Yes (Hospitalization, Other)
  Sender: FDA-Public Use
  Company Number: 2007VX002606

PATIENT
  Age: 74 Year
  Sex: Female

DRUGS (8)
  1. PERMAX [Suspect]
     Indication: PARKINSON'S DISEASE
     Dosage: SEE IMAGE
     Route: 048
     Dates: start: 20040101, end: 20050101
  2. PERMAX [Suspect]
     Indication: PARKINSON'S DISEASE
     Dosage: SEE IMAGE
     Route: 048
     Dates: end: 20070601
  3. PERMAX [Suspect]
     Indication: PARKINSON'S DISEASE
     Dosage: SEE IMAGE
     Route: 048
     Dates: start: 20050101
  4. PERMAX [Suspect]
     Indication: PARKINSON'S DISEASE
     Dosage: SEE IMAGE
     Route: 048
     Dates: start: 20070601
  5. LEVODOPA BENSERAZIDE [Concomitant]
  6. HYDROCHLO [Concomitant]
  7. SIFROL [Concomitant]
  8. SYMMETREL [Concomitant]

REACTIONS (7)
  - CARDIAC ANEURYSM [None]
  - CARDIAC FAILURE CONGESTIVE [None]
  - CARDIAC VALVE DISEASE [None]
  - DYSPNOEA [None]
  - HYDROTHORAX [None]
  - MITRAL VALVE DISEASE [None]
  - MITRAL VALVE INCOMPETENCE [None]
